FAERS Safety Report 10003601 (Version 1)
Quarter: 2014Q1

REPORT INFORMATION
  Report Type: Spontaneous
  Country: US (occurrence: US)
  Receive Date: 20140312
  Receipt Date: 20140312
  Transmission Date: 20141002
  Serious: No
  Sender: FDA-Public Use
  Company Number: US-B.I. PHARMACEUTICALS,INC./RIDGEFIELD-2014-BI-09711BP

PATIENT
  Age: 49 Year
  Sex: Male
  Weight: 103 kg

DRUGS (2)
  1. SPIRIVA [Suspect]
     Indication: ASTHMA
     Route: 055
     Dates: start: 2009
  2. SPIRIVA [Suspect]
     Route: 048
     Dates: start: 20140304, end: 20140304

REACTIONS (2)
  - Incorrect route of drug administration [Recovered/Resolved]
  - Off label use [Unknown]
